FAERS Safety Report 9009815 (Version 5)
Quarter: 2014Q2

REPORT INFORMATION
  Report Type: Report from Study
  Country: JP (occurrence: JP)
  Receive Date: 20130110
  Receipt Date: 20140411
  Transmission Date: 20141212
  Serious: Yes (Other)
  Sender: FDA-Public Use
  Company Number: JP-009507513-1301JPN003365

PATIENT
  Age: 69 Year
  Sex: Male
  Weight: 69 kg

DRUGS (3)
  1. REBETOL [Suspect]
     Indication: CHRONIC HEPATITIS C
     Dosage: 400 MG, BID(MORNING: 400MG; EVENING:400MG)
     Route: 048
     Dates: start: 20111017, end: 20111108
  2. FERON [Suspect]
     Indication: CHRONIC HEPATITIS C
     Dosage: 6 MILLION-BILLION UNIT,DAILY
     Route: 041
     Dates: start: 20111017, end: 20111108
  3. UBIRON [Concomitant]
     Indication: CHRONIC HEPATITIS C
     Dosage: 300 MG, QD
     Route: 048
     Dates: start: 2002

REACTIONS (4)
  - Acute myocardial infarction [Recovered/Resolved]
  - Proteinuria [Recovered/Resolved]
  - Eczema [Recovered/Resolved]
  - White blood cell count decreased [Recovered/Resolved]
